FAERS Safety Report 8795721 (Version 1)
Quarter: 2012Q4

REPORT INFORMATION
  Report Type: 
  Country: US (occurrence: US)
  Receive Date: 20120920
  Receipt Date: 20120920
  Transmission Date: 20130627
  Serious: No
  Sender: FDA-Public Use
  Company Number: US-PFIZER INC-2010090512

PATIENT
  Sex: Male

DRUGS (3)
  1. EFFEXOR XR [Suspect]
     Dosage: 150 mg, UNK
  2. EFFEXOR XR [Suspect]
     Dosage: 75 mg, UNK
  3. EFFEXOR XR [Suspect]
     Dosage: UNK

REACTIONS (2)
  - Male sexual dysfunction [Unknown]
  - Fatigue [Unknown]
